FAERS Safety Report 9052722 (Version 2)
Quarter: 2013Q4

REPORT INFORMATION
  Report Type: Spontaneous
  Country: CO (occurrence: CO)
  Receive Date: 20130207
  Receipt Date: 20131128
  Transmission Date: 20140711
  Serious: Yes (Other)
  Sender: FDA-Public Use
  Company Number: CO-SHIRE-ALL1-2013-00518

PATIENT
  Age: 2 Year
  Sex: Male
  Weight: 15 kg

DRUGS (7)
  1. ELAPRASE [Suspect]
     Indication: MUCOPOLYSACCHARIDOSIS II
     Dosage: 0.5 MG, 1X/WEEK
     Route: 041
     Dates: start: 20121103
  2. MONTELUKAST [Concomitant]
     Indication: PRODUCT USED FOR UNKNOWN INDICATION
     Dosage: 4 MG (GRANULES FOR RECONSITUTION), 1X/DAY:QD
     Route: 048
  3. MONTELUKAST [Concomitant]
     Dosage: 2 MG, UNKNOWN
     Route: 048
  4. BECLOMETASONE DIPROPIONATE [Concomitant]
     Indication: PRODUCT USED FOR UNKNOWN INDICATION
     Dosage: 3 DF, 1X/DAY:QD (3 PUFFS AT NIGHT)
     Route: 055
  5. HYDROXYZINE [Concomitant]
     Indication: PREMEDICATION
     Dosage: 3 MG, UNKNOWN
     Route: 048
     Dates: start: 20130126
  6. HYDROXYZINE [Concomitant]
     Indication: CELLULITIS
  7. HYDROXYZINE [Concomitant]
     Indication: INFUSION RELATED REACTION

REACTIONS (2)
  - Oedema peripheral [Recovered/Resolved]
  - Infusion related reaction [Recovered/Resolved]
